FAERS Safety Report 6344191-4 (Version None)
Quarter: 2009Q3

REPORT INFORMATION
  Report Type: 
  Country: None (occurrence: None)
  Receive Date: 20090908
  Receipt Date: 20090825
  Transmission Date: 20100115
  Serious: Yes (Hospitalization, Other)
  Sender: FDA-Public Use
  Company Number: US-PFIZER INC-2009260695

PATIENT
  Sex: Male
  Weight: 72.562 kg

DRUGS (6)
  1. NEURONTIN [Suspect]
     Indication: MENTAL DISORDER
     Dosage: 1600 MG, 2X/DAY
     Route: 065
     Dates: start: 20020101
  2. NEURONTIN [Suspect]
     Indication: PAIN
  3. CITALOPRAM [Concomitant]
     Dosage: UNK
  4. LAMOTRIGINE [Concomitant]
     Dosage: UNK
  5. URSO 250 [Concomitant]
     Dosage: UNK
  6. TESTOSTERONE [Concomitant]
     Indication: ANDROGEN DEFICIENCY
     Dosage: UNK
     Route: 030

REACTIONS (3)
  - CATHETER RELATED INFECTION [None]
  - CROHN'S DISEASE [None]
  - ILEOSTOMY [None]
